FAERS Safety Report 7458008-8 (Version None)
Quarter: 2011Q2

REPORT INFORMATION
  Report Type: 
  Country: None (occurrence: None)
  Receive Date: 20110503
  Receipt Date: 20110503
  Transmission Date: 20111010
  Serious: No
  Sender: FDA-Public Use
  Company Number: None

PATIENT
  Sex: Female
  Weight: 90.7194 kg

DRUGS (1)
  1. MIRAPEX [Suspect]
     Indication: RESTLESS LEGS SYNDROME
     Dosage: 1 MG 1 AT BED TIME; 1MG 1 IN MORN 1 AT BED
     Dates: start: 20030414, end: 20110429

REACTIONS (4)
  - COMPULSIVE SHOPPING [None]
  - WEIGHT INCREASED [None]
  - PATHOLOGICAL GAMBLING [None]
  - COMPULSIONS [None]
